FAERS Safety Report 7380968-4 (Version None)
Quarter: 2011Q1

REPORT INFORMATION
  Report Type: 
  Country: None (occurrence: None)
  Receive Date: 20110329
  Receipt Date: 20110321
  Transmission Date: 20110831
  Serious: Yes (Hospitalization)
  Sender: FDA-Public Use
  Company Number: US-ASTRAZENECA-2011SE16314

PATIENT
  Age: 43 Year
  Sex: Male

DRUGS (2)
  1. ANTIBIOTIC [Concomitant]
  2. SEROQUEL [Suspect]
     Route: 048

REACTIONS (4)
  - PNEUMONIA [None]
  - VOMITING [None]
  - MALAISE [None]
  - MEDICAL DEVICE IMPLANTATION [None]
